FAERS Safety Report 10038741 (Version 3)
Quarter: 2014Q2

REPORT INFORMATION
  Report Type: Report from Study
  Country: US (occurrence: US)
  Receive Date: 20140326
  Receipt Date: 20140404
  Transmission Date: 20141212
  Serious: Yes (Hospitalization, Other)
  Sender: FDA-Public Use
  Company Number: US-ACTELION-A-NJ2014-95548

PATIENT
  Age: 56 Year
  Sex: Female

DRUGS (5)
  1. VELETRI [Suspect]
     Indication: COR PULMONALE CHRONIC
     Dosage: 80 NG/KG, PER MIN
     Route: 042
     Dates: start: 20101215
  2. ADCIRCA [Concomitant]
  3. COUMADIN [Concomitant]
  4. TYVASO [Concomitant]
  5. LETAIRIS [Concomitant]

REACTIONS (2)
  - Pulmonary veno-occlusive disease [Unknown]
  - Pulmonary arterial hypertension [Unknown]
